FAERS Safety Report 20389514 (Version 1)
Quarter: 2022Q1

REPORT INFORMATION
  Report Type: Spontaneous
  Country: US (occurrence: US)
  Receive Date: 20220128
  Receipt Date: 20220128
  Transmission Date: 20220423
  Serious: No
  Sender: FDA-Public Use
  Company Number: US-BAUSCH-BL-2022-001672

PATIENT
  Age: 75 Year
  Sex: Female
  Weight: 56.750 kg

DRUGS (2)
  1. POLYMYXIN B SULFATE AND TRIMETHOPRIM [Suspect]
     Active Substance: POLYMYXIN B SULFATE\TRIMETHOPRIM SULFATE
     Indication: Conjunctivitis
     Dosage: 1 DROP IN EACH EYE EVERY 3 HOURS OR 6 TIMES PER DAY
     Route: 047
     Dates: start: 20211212, end: 20220117
  2. AMITRIPTYLINE [Concomitant]
     Active Substance: AMITRIPTYLINE
     Indication: Product used for unknown indication

REACTIONS (1)
  - Instillation site inflammation [Unknown]

NARRATIVE: CASE EVENT DATE: 20220112
